FAERS Safety Report 4907041-6 (Version None)
Quarter: 2006Q1

REPORT INFORMATION
  Report Type: 
  Country: None (occurrence: None)
  Receive Date: 20060203
  Receipt Date: 20050506
  Transmission Date: 20060701
  Serious: Yes (Hospitalization, Other)
  Sender: FDA-Public Use
  Company Number: HQWYE866308APR05

PATIENT
  Age: 53 Year
  Sex: Female
  Weight: 114.86 kg

DRUGS (15)
  1. RAPAMUNE [Suspect]
     Indication: PROPHYLAXIS AGAINST TRANSPLANT REJECTION
     Dosage: 6 MG 1X PER 1 DAY, ORAL
     Route: 048
     Dates: start: 20030707, end: 20041007
  2. IMDIUM (LOPERAMIDE HYDROCHLORIDE) [Concomitant]
  3. NIFEREX (POLYSACCHARIDE-IRON COMPLEX) [Concomitant]
  4. ZANTAC [Concomitant]
  5. FUROSEMIDE [Concomitant]
  6. COZAAR [Concomitant]
  7. CARDIZEM (DILTIAZEM HYDROCHLORIDE0) [Concomitant]
  8. LABETALOL HCL [Concomitant]
  9. ZAROXOLYN [Concomitant]
  10. ZETIA [Concomitant]
  11. MYCOPHENOLATE MOFETIL (MYCOPHENOLATE MOFETIL) [Concomitant]
  12. PREDNISONE [Concomitant]
  13. PROGRAF [Concomitant]
  14. VASOTEC [Concomitant]
  15. EPOGEN [Concomitant]

REACTIONS (15)
  - COMPLICATIONS OF TRANSPLANTED KIDNEY [None]
  - DIARRHOEA [None]
  - DYSPNOEA [None]
  - FLUID OVERLOAD [None]
  - HAEMODIALYSIS [None]
  - KIDNEY FIBROSIS [None]
  - NAUSEA [None]
  - OEDEMA [None]
  - PERICARDIAL EFFUSION [None]
  - PLEURAL EFFUSION [None]
  - PULMONARY CONGESTION [None]
  - PULMONARY OEDEMA [None]
  - RENAL FAILURE CHRONIC [None]
  - TRANSPLANT FAILURE [None]
  - VOMITING [None]
